FAERS Safety Report 5932354-9 (Version None)
Quarter: 2008Q4

REPORT INFORMATION
  Report Type: 
  Country: None (occurrence: None)
  Receive Date: 20081023
  Receipt Date: 20081010
  Transmission Date: 20090506
  Serious: Yes (Other)
  Sender: FDA-Public Use
  Company Number: 2008BI025029

PATIENT
  Age: 25 Year
  Sex: Female

DRUGS (8)
  1. TYSABRI [Suspect]
     Indication: MULTIPLE SCLEROSIS
     Dosage: 300 MG; QM; IV
     Route: 042
     Dates: start: 20080424, end: 20080916
  2. KEPPRA [Concomitant]
  3. TOPAMAX [Concomitant]
  4. BACLOFEN [Concomitant]
  5. RITALIN [Concomitant]
  6. BETHANECHOL [Concomitant]
  7. STOOL SOFTENER [Concomitant]
  8. AVONEX [Concomitant]

REACTIONS (3)
  - ABORTION SPONTANEOUS [None]
  - DRUG EXPOSURE DURING PREGNANCY [None]
  - PREGNANCY [None]
